FAERS Safety Report 6356107-5 (Version None)
Quarter: 2009Q3

REPORT INFORMATION
  Report Type: 
  Country: None (occurrence: None)
  Receive Date: 20090915
  Receipt Date: 20090909
  Transmission Date: 20100115
  Serious: Yes (Hospitalization)
  Sender: FDA-Public Use
  Company Number: CH-BRISTOL-MYERS SQUIBB COMPANY-14766844

PATIENT
  Age: 44 Year
  Sex: Male

DRUGS (4)
  1. SPRYCEL [Suspect]
     Indication: CHRONIC MYELOID LEUKAEMIA
     Dosage: 60 DF = 60 TABLETS OF  50 MG SPRYCEL , 3 GRAMS
     Route: 048
     Dates: start: 20090902, end: 20090902
  2. GLEEVEC [Suspect]
     Indication: CHRONIC MYELOID LEUKAEMIA
     Dosage: 30 TABLETS OF 400 MG GLIVEC;AS CONMED 12GRAM;
     Route: 048
     Dates: start: 20090902, end: 20090902
  3. TRANQUILIZER [Concomitant]
     Dates: start: 20090902, end: 20090902
  4. REMERON [Concomitant]
     Dates: start: 20090902

REACTIONS (3)
  - FULL BLOOD COUNT DECREASED [None]
  - OVERDOSE [None]
  - SUICIDE ATTEMPT [None]
